FAERS Safety Report 10597357 (Version 3)
Quarter: 2015Q4

REPORT INFORMATION
  Report Type: Report from Study
  Country: US (occurrence: US)
  Receive Date: 20141121
  Receipt Date: 20151001
  Transmission Date: 20160304
  Serious: No
  Sender: FDA-Public Use
  Company Number: US-AMGEN INC.-USASL2014090047

PATIENT
  Age: 57 Year
  Sex: Female

DRUGS (2)
  1. ENBREL [Suspect]
     Active Substance: ETANERCEPT
     Indication: RHEUMATOID ARTHRITIS
     Dosage: 50 MG, QWK
     Route: 065
     Dates: start: 20140613
  2. METHOTREXATE [Concomitant]
     Active Substance: METHOTREXATE
     Dosage: UNK

REACTIONS (10)
  - Feeling cold [Unknown]
  - Arthralgia [Unknown]
  - Pain in extremity [Unknown]
  - Frustration [Not Recovered/Not Resolved]
  - Joint stiffness [Not Recovered/Not Resolved]
  - Surgery [Unknown]
  - Chills [Unknown]
  - Feeling hot [Unknown]
  - Musculoskeletal stiffness [Unknown]
  - Balance disorder [Unknown]

NARRATIVE: CASE EVENT DATE: 2014
